FAERS Safety Report 5254691-6 (Version None)
Quarter: 2007Q1

REPORT INFORMATION
  Report Type: 
  Country: None (occurrence: None)
  Receive Date: 20070227
  Receipt Date: 20070214
  Transmission Date: 20070707
  Serious: Yes (Other)
  Sender: FDA-Public Use
  Company Number: 234770

PATIENT
  Age: 32 Year
  Sex: Female
  Weight: 88 kg

DRUGS (10)
  1. OMALIZUMAB(OMALIZUMAB) PWDR + SOLVENT, INJECTION SOLN, 150MG [Suspect]
     Indication: DRUG USE FOR UNKNOWN INDICATION
     Dosage: 150 MG
     Dates: start: 20060304
  2. PREDNISONE TAB [Concomitant]
  3. AMBIEN [Concomitant]
  4. ZOLOFT [Concomitant]
  5. RHINOCORT [Concomitant]
  6. PULMICORT [Concomitant]
  7. PRENATAL VITAMIN (MINERALS NOS, MULTIVITAMINS NOS) [Concomitant]
  8. CELESTONE [Concomitant]
  9. AMPICILLIN [Concomitant]
  10. ZITHROMAX [Concomitant]

REACTIONS (6)
  - DRUG EXPOSURE DURING PREGNANCY [None]
  - GESTATIONAL DIABETES [None]
  - PERINEAL LACERATION [None]
  - PREGNANCY [None]
  - PREMATURE BABY [None]
  - PREMATURE RUPTURE OF MEMBRANES [None]
